FAERS Safety Report 19677991 (Version 1)
Quarter: 2021Q3

REPORT INFORMATION
  Report Type: Spontaneous
  Country: US (occurrence: US)
  Receive Date: 20210809
  Receipt Date: 20210809
  Transmission Date: 20211014
  Serious: Yes (Other)
  Sender: FDA-Public Use
  Company Number: US-PFIZER INC-202100967604

PATIENT
  Age: 76 Year
  Sex: Male

DRUGS (3)
  1. SALINE NASAL SPRAY [Concomitant]
     Active Substance: SODIUM CHLORIDE
  2. ZITHROMAX [Suspect]
     Active Substance: AZITHROMYCIN DIHYDRATE
     Dosage: UNK
  3. ALBUTEROL HFA [Concomitant]
     Active Substance: ALBUTEROL SULFATE

REACTIONS (11)
  - Tongue blistering [Unknown]
  - Oral mucosal blistering [Unknown]
  - Gait disturbance [Unknown]
  - Nasal congestion [Unknown]
  - Chronic obstructive pulmonary disease [Unknown]
  - Neuralgia [Unknown]
  - Nausea [Unknown]
  - Condition aggravated [Unknown]
  - Dizziness [Unknown]
  - Pneumonia [Unknown]
  - Headache [Unknown]
